FAERS Safety Report 8073756-7 (Version None)
Quarter: 2012Q1

REPORT INFORMATION
  Report Type: 
  Country: None (occurrence: None)
  Receive Date: 20120126
  Receipt Date: 20120120
  Transmission Date: 20120608
  Serious: Yes (Other)
  Sender: FDA-Public Use
  Company Number: DE-B.I. PHARMACEUTICALS,INC./RIDGEFIELD-2012-DE-00195DE

PATIENT
  Sex: Male

DRUGS (1)
  1. MICARDIS [Suspect]

REACTIONS (1)
  - NEOPLASM MALIGNANT [None]
